FAERS Safety Report 5106670-7 (Version None)
Quarter: 2006Q3

REPORT INFORMATION
  Report Type: 
  Country: None (occurrence: None)
  Receive Date: 20060731
  Receipt Date: 20050729
  Transmission Date: 20061208
  Serious: Yes (Hospitalization)
  Sender: FDA-Public Use
  Company Number: US-JNJFOC-20050605808

PATIENT
  Age: 27 Year
  Sex: Male
  Weight: 77 kg

DRUGS (4)
  1. RISPERIDONE [Suspect]
     Indication: SCHIZOPHRENIA
     Dosage: 6 MG, IN 1 DAY, ORAL
     Route: 048
     Dates: start: 20050425, end: 20050524
  2. BIFEPRUNOX (ANTIPSYCHOTICS) [Suspect]
     Indication: SCHIZOPHRENIA
     Dates: start: 20050425, end: 20050524
  3. ZOLPIDEM (UNKNOWN) ZOLPIDEM [Concomitant]
  4. LORAZEPAM (UNKNOWN) LORAZEPAM [Concomitant]

REACTIONS (4)
  - AKATHISIA [None]
  - NASOPHARYNGITIS [None]
  - SCHIZOPHRENIA [None]
  - VOMITING [None]
